FAERS Safety Report 8150972-7 (Version None)
Quarter: 2012Q1

REPORT INFORMATION
  Report Type: 
  Country: None (occurrence: None)
  Receive Date: 20120220
  Receipt Date: 20120215
  Transmission Date: 20120608
  Serious: Yes (Death)
  Sender: FDA-Public Use
  Company Number: PHEH2011US012586

PATIENT
  Sex: Female

DRUGS (16)
  1. GILENYA [Suspect]
     Indication: SECONDARY PROGRESSIVE MULTIPLE SCLEROSIS
     Dosage: 0.5 MG, QD
     Route: 048
     Dates: start: 20110225, end: 20110318
  2. AMPHETAMINE AND DEXTROAMPHETAMINE SALTS [Suspect]
     Dosage: 10 MG, BID
  3. ACETAMINOPHEN AND HYDROCODONE BITARTRATE [Suspect]
     Indication: PAIN
     Dosage: 10/500 MG
  4. LOVENOX [Concomitant]
     Indication: DEEP VEIN THROMBOSIS
     Dosage: 30 MG, BID
     Route: 058
     Dates: end: 20111211
  5. VITAMIN B-12 [Concomitant]
     Dosage: 1000 UG, Q4WK
     Route: 030
     Dates: end: 20111211
  6. NEURONTIN [Concomitant]
     Indication: NEURALGIA
     Dosage: 300 MG, TID
     Route: 048
     Dates: end: 20111211
  7. BACLOFEN [Suspect]
     Dosage: UNK UKN, UNK
  8. DIAZEPAM [Suspect]
     Dosage: 10 MG, BID
  9. PHYSICAL THERAPY [Concomitant]
     Dosage: UNK UKN, UNK
  10. TYSABRI [Suspect]
     Dosage: UNK UKN, UNK
  11. ADDERALL 5 [Concomitant]
     Indication: FATIGUE
     Dosage: 10 MG, BID (ONCE IN MORNING AND ONCE IN THE EVENING)
     Route: 048
     Dates: end: 20111211
  12. ZANAFLEX [Suspect]
     Indication: MUSCLE RELAXANT THERAPY
  13. GABAPENTIN [Suspect]
     Dosage: 300 MG, QID
     Route: 048
  14. CITALOPRAM HYDROBROMIDE [Suspect]
     Indication: DEPRESSION
     Dosage: 20 MG, UNK
  15. SINGULAIR [Suspect]
     Dosage: 10 MG, QD
  16. PREVACID [Concomitant]
     Indication: DYSPEPSIA
     Dosage: 30 MG, QD (EVERY MORNING)
     Route: 048
     Dates: end: 20111211

REACTIONS (7)
  - MULTIPLE SCLEROSIS [None]
  - PNEUMONIA [None]
  - ASTHENIA [None]
  - BLOOD PRESSURE DECREASED [None]
  - CACHEXIA [None]
  - FALL [None]
  - DRUG INEFFECTIVE [None]
